APPROVED DRUG PRODUCT: BUSULFEX
Active Ingredient: BUSULFAN
Strength: 6MG/ML
Dosage Form/Route: INJECTABLE;INJECTION
Application: N020954 | Product #001 | TE Code: AP
Applicant: OTSUKA PHARMACEUTICAL CO LTD
Approved: Feb 4, 1999 | RLD: Yes | RS: Yes | Type: RX